FAERS Safety Report 9210316 (Version 1)
Quarter: 2013Q2

REPORT INFORMATION
  Report Type: Spontaneous
  Country: JP (occurrence: JP)
  Receive Date: 20130404
  Receipt Date: 20130404
  Transmission Date: 20140414
  Serious: Yes (Other)
  Sender: FDA-Public Use
  Company Number: JP-ELI_LILLY_AND_COMPANY-JP201303010052

PATIENT
  Age: 0 Year
  Sex: 0
  Weight: 2.03 kg

DRUGS (6)
  1. HUMALOG LISPRO [Suspect]
     Indication: TYPE 1 DIABETES MELLITUS
     Dosage: UNK
     Route: 064
     Dates: end: 20111204
  2. HUMALOG LISPRO [Suspect]
     Dosage: UNK
     Dates: start: 20111205
  3. PROGESTERONE [Concomitant]
     Route: 064
  4. THYRADIN-S [Concomitant]
     Indication: HYPOTHYROIDISM
     Dosage: 50 UG, QD
     Route: 064
     Dates: end: 20111204
  5. THYRADIN-S [Concomitant]
     Dosage: 50 UG, QD
     Dates: start: 20111205, end: 20111220
  6. FOLIAMIN [Concomitant]
     Indication: FOLATE DEFICIENCY
     Dosage: 5 MG, QD
     Route: 064
     Dates: start: 20110502, end: 20111203

REACTIONS (3)
  - Low birth weight baby [Not Recovered/Not Resolved]
  - Foetal exposure during pregnancy [Recovered/Resolved]
  - Exposure during breast feeding [Unknown]
